FAERS Safety Report 12293446 (Version 1)
Quarter: 2016Q2

REPORT INFORMATION
  Report Type: Report from Study
  Country: BR (occurrence: BR)
  Receive Date: 20160421
  Receipt Date: 20160421
  Transmission Date: 20160815
  Serious: Yes (Hospitalization)
  Sender: FDA-Public Use
  Company Number: PHHY2016BR052551

PATIENT
  Sex: Female
  Weight: 58 kg

DRUGS (1)
  1. EXJADE [Suspect]
     Active Substance: DEFERASIROX
     Indication: MYELODYSPLASTIC SYNDROME
     Dosage: 2000 MG (35 MG/KG), QD
     Route: 048
     Dates: start: 2007

REACTIONS (4)
  - Infection [Unknown]
  - Skin ulcer [Unknown]
  - Weight increased [Unknown]
  - Immunodeficiency [Unknown]
